FAERS Safety Report 13660007 (Version 1)
Quarter: 2017Q2

REPORT INFORMATION
  Report Type: Spontaneous
  Country: US (occurrence: US)
  Receive Date: 20170616
  Receipt Date: 20170616
  Transmission Date: 20170830
  Serious: No
  Sender: FDA-Public Use
  Company Number: US-ALLERGAN-1719595US

PATIENT
  Age: 22 Year
  Sex: Female

DRUGS (1)
  1. LILETTA [Suspect]
     Active Substance: LEVONORGESTREL
     Indication: CONTRACEPTION
     Dosage: 52 MG
     Route: 015
     Dates: start: 20170327, end: 20170510

REACTIONS (5)
  - Uterine haemorrhage [Recovered/Resolved]
  - Acne [Recovering/Resolving]
  - Hyperhidrosis [Recovering/Resolving]
  - Uterine spasm [Recovered/Resolved]
  - Device expulsion [Recovered/Resolved]

NARRATIVE: CASE EVENT DATE: 20170327
